FAERS Safety Report 12157267 (Version 2)
Quarter: 2016Q2

REPORT INFORMATION
  Report Type: Spontaneous
  Country: VE (occurrence: VE)
  Receive Date: 20160308
  Receipt Date: 20160405
  Transmission Date: 20160815
  Serious: Yes (Other)
  Sender: FDA-Public Use
  Company Number: VE-ORION CORPORATION ORION PHARMA-ENTC2016-0108

PATIENT
  Sex: Male

DRUGS (1)
  1. STALEVO [Suspect]
     Active Substance: CARBIDOPA\ENTACAPONE\LEVODOPA
     Indication: PARKINSON^S DISEASE
     Dosage: STRENGTH: 150 MG
     Route: 048
     Dates: start: 2008, end: 201602

REACTIONS (9)
  - Musculoskeletal stiffness [Not Recovered/Not Resolved]
  - Product supply issue [Unknown]
  - Diabetes mellitus [Not Recovered/Not Resolved]
  - Aphonia [Not Recovered/Not Resolved]
  - Eating disorder [Not Recovered/Not Resolved]
  - Salivary hypersecretion [Not Recovered/Not Resolved]
  - Dysphagia [Not Recovered/Not Resolved]
  - Stress [Not Recovered/Not Resolved]
  - Joint stiffness [Not Recovered/Not Resolved]
